FAERS Safety Report 9448257 (Version 1)
Quarter: 2013Q3

REPORT INFORMATION
  Report Type: Spontaneous
  Country: FR (occurrence: FR)
  Receive Date: 20130808
  Receipt Date: 20130808
  Transmission Date: 20140515
  Serious: Yes (Hospitalization)
  Sender: FDA-Public Use
  Company Number: FR-PFIZER INC-2013227191

PATIENT
  Age: 71 Year
  Sex: Male

DRUGS (2)
  1. LYRICA [Suspect]
     Dosage: UNK
     Route: 048
     Dates: start: 201302, end: 201305
  2. CYMBALTA [Suspect]
     Dosage: UNK
     Route: 048
     Dates: start: 201302, end: 201305

REACTIONS (2)
  - Hallucination, visual [Not Recovered/Not Resolved]
  - Orchitis [Not Recovered/Not Resolved]
